FAERS Safety Report 6637783-6 (Version None)
Quarter: 2010Q1

REPORT INFORMATION
  Report Type: 
  Country: None (occurrence: None)
  Receive Date: 20100317
  Receipt Date: 20100310
  Transmission Date: 20100710
  Serious: Yes (Hospitalization)
  Sender: FDA-Public Use
  Company Number: DE-EISAI INC.-E2020-05872-SOL-DE

PATIENT
  Sex: Male
  Weight: 70 kg

DRUGS (10)
  1. ARICEPT [Suspect]
     Route: 048
     Dates: start: 20090907, end: 20090913
  2. ARICEPT [Suspect]
     Route: 048
     Dates: start: 20090914, end: 20090920
  3. ARICEPT [Suspect]
     Route: 048
     Dates: start: 20090921, end: 20091204
  4. TORSEMIDE [Concomitant]
     Route: 048
  5. BISOPROLOL [Concomitant]
     Route: 048
  6. ASPIRIN [Concomitant]
  7. ALDACTONE [Concomitant]
     Route: 048
  8. TAMBOCOR [Concomitant]
     Route: 048
  9. SIMVASTATIN [Concomitant]
  10. RENACOR [Concomitant]

REACTIONS (1)
  - CARDIAC FAILURE [None]
